FAERS Safety Report 5849686-5 (Version None)
Quarter: 2008Q3

REPORT INFORMATION
  Report Type: 
  Country: None (occurrence: None)
  Receive Date: 20080818
  Receipt Date: 20080818
  Transmission Date: 20090109
  Serious: Yes (Life-Threatening, Hospitalization)
  Sender: FDA-Public Use
  Company Number: None

PATIENT
  Age: 17 Year
  Sex: Male
  Weight: 61.2356 kg

DRUGS (2)
  1. ZYPREXA [Suspect]
     Indication: THINKING ABNORMAL
     Dosage: ONCE DAILY PO
     Route: 048
     Dates: start: 19980101, end: 20010101
  2. RISPERDAL [Suspect]
     Indication: AFFECTIVE DISORDER
     Dosage: ONCE DAILY PO
     Route: 048
     Dates: start: 19980101, end: 20000101

REACTIONS (2)
  - BLOOD CHOLESTEROL INCREASED [None]
  - DIABETES MELLITUS INADEQUATE CONTROL [None]
